FAERS Safety Report 15376753 (Version 1)
Quarter: 2018Q3

REPORT INFORMATION
  Report Type: Report from Study
  Country: None (occurrence: US)
  Receive Date: 20180913
  Receipt Date: 20180913
  Transmission Date: 20181010
  Serious: Yes (Hospitalization)
  Sender: FDA-Public Use
  Company Number: US-ABBVIE-18S-163-2477552-00

PATIENT
  Age: 45 Year
  Sex: Female

DRUGS (1)
  1. DEPAKOTE ER [Suspect]
     Active Substance: DIVALPROEX SODIUM
     Indication: SEIZURE
     Route: 048
     Dates: start: 20150225

REACTIONS (4)
  - Hypoaesthesia [Unknown]
  - Migraine [Unknown]
  - Arthropod bite [Unknown]
  - Seizure [Unknown]

NARRATIVE: CASE EVENT DATE: 2018
